FAERS Safety Report 23709113 (Version 5)
Quarter: 2024Q3

REPORT INFORMATION
  Report Type: Spontaneous
  Country: SE (occurrence: SE)
  Receive Date: 20240404
  Receipt Date: 20240820
  Transmission Date: 20241016
  Serious: Yes (Death, Hospitalization, Other)
  Sender: GENMAB
  Company Number: SE-ABBVIE-5697062

PATIENT
  Age: 78 Year
  Sex: Male

DRUGS (14)
  1. EPCORITAMAB [Suspect]
     Active Substance: EPCORITAMAB
     Indication: B-cell small lymphocytic lymphoma
     Dosage: ESCALATION FIRST DOSE OF 0.16 MG
     Route: 058
     Dates: start: 20240226, end: 20240226
  2. EPCORITAMAB [Suspect]
     Active Substance: EPCORITAMAB
     Indication: B-cell lymphoma
     Dosage: ESCALATION SECOND DOSE OF 0.8 MG
     Route: 058
     Dates: start: 20240304, end: 20240304
  3. EPCORITAMAB [Suspect]
     Active Substance: EPCORITAMAB
     Dosage: 48 MILLIGRAM, TOTAL, THIRD DOSE FIRST FULL DOSE
     Route: 058
     Dates: start: 20240311, end: 20240311
  4. LENALIDOMID ZENTIVA [Concomitant]
     Indication: Product used for unknown indication
     Dosage: 1 TABLET ONCE DAILY DOSE: 7.5 MG
     Route: 048
     Dates: start: 20240227, end: 20240311
  5. KINERET [Concomitant]
     Active Substance: ANAKINRA
     Indication: Product used for unknown indication
     Dosage: 2 DOSES A 100 MG
     Route: 065
     Dates: start: 20240316, end: 20240316
  6. DESLORATADINE [Concomitant]
     Active Substance: DESLORATADINE
     Indication: Product used for unknown indication
     Dosage: 10 MILLIGRAM WITH 2ND + 3D DOSE EPCORITAMAB
     Route: 065
  7. BETAPRED [Concomitant]
     Active Substance: BETAMETHASONE SODIUM PHOSPHATE
     Indication: Product used for unknown indication
     Dosage: 40 MILLIGRAM
     Route: 042
     Dates: start: 20240316, end: 20240316
  8. LENALIDOMIDE [Concomitant]
     Active Substance: LENALIDOMIDE
     Indication: Product used for unknown indication
     Dosage: 7.5 MILLIGRAM
     Route: 065
     Dates: start: 20240227, end: 20240311
  9. TOCILIZUMAB [Concomitant]
     Active Substance: TOCILIZUMAB
     Indication: Cytokine release syndrome
     Dosage: 600 MILLIGRAM
     Route: 065
     Dates: start: 20240311, end: 20240311
  10. TOCILIZUMAB [Concomitant]
     Active Substance: TOCILIZUMAB
     Indication: Immune effector cell-associated neurotoxicity syndrome
     Dosage: 800 MILLIGRAM
     Route: 065
     Dates: start: 20240312, end: 20240312
  11. TOCILIZUMAB [Concomitant]
     Active Substance: TOCILIZUMAB
     Dosage: 2 DOSES A 800 MG
     Route: 065
     Dates: start: 20240316
  12. DEXAMETHASONE ACETATE [Concomitant]
     Active Substance: DEXAMETHASONE ACETATE
     Indication: Product used for unknown indication
     Dosage: SAME DAYS AS EPCORITAMAB+FOLLOWING 3DAYS
     Route: 048
     Dates: start: 20240313, end: 20240314
  13. DEXAMETHASONE ACETATE [Concomitant]
     Active Substance: DEXAMETHASONE ACETATE
     Dosage: 36 MILLIGRAM
     Route: 048
     Dates: start: 20240315, end: 20240315
  14. DEXAMETHASONE ACETATE [Concomitant]
     Active Substance: DEXAMETHASONE ACETATE
     Dosage: 12 MILLIGRAM
     Route: 048

REACTIONS (7)
  - Melaena [Fatal]
  - Cytokine release syndrome [Fatal]
  - Haemorrhage [Fatal]
  - Coagulopathy [Fatal]
  - Tumour lysis syndrome [Fatal]
  - Immune effector cell-associated neurotoxicity syndrome [Unknown]
  - Off label use [Unknown]

NARRATIVE: CASE EVENT DATE: 20240311
